FAERS Safety Report 12570558 (Version 1)
Quarter: 2016Q3

REPORT INFORMATION
  Report Type: Spontaneous
  Country: DE (occurrence: DE)
  Receive Date: 20160719
  Receipt Date: 20160719
  Transmission Date: 20161109
  Serious: Yes (Congenital Anomaly)
  Sender: FDA-Public Use
  Company Number: DE-TEVA-675072GER

PATIENT
  Age: 0 Year
  Sex: Female
  Weight: .57 kg

DRUGS (3)
  1. VALSARTAN. [Suspect]
     Active Substance: VALSARTAN
     Indication: HYPERTENSION
     Dosage: UNKNOWN DOSAGE
     Route: 064
     Dates: start: 20150819, end: 20160121
  2. L-THYROXIN [Concomitant]
     Active Substance: LEVOTHYROXINE SODIUM
     Indication: HYPOTHYROIDISM
     Route: 064
  3. NOVOTHYRAL [Concomitant]
     Active Substance: LEVOTHYROXINE SODIUM\LIOTHYRONINE SODIUM
     Indication: HYPOTHYROIDISM
     Route: 064

REACTIONS (3)
  - Limb hypoplasia congenital [Not Recovered/Not Resolved]
  - Foetal exposure during pregnancy [Unknown]
  - Kidney malrotation [Not Recovered/Not Resolved]
